FAERS Safety Report 6981700-6 (Version None)
Quarter: 2010Q3

REPORT INFORMATION
  Report Type: 
  Country: None (occurrence: None)
  Receive Date: 20100914
  Receipt Date: 20091102
  Transmission Date: 20110219
  Serious: No
  Sender: FDA-Public Use
  Company Number: US-PFIZER INC-2009269615

PATIENT
  Sex: Female
  Weight: 90.7 kg

DRUGS (9)
  1. LYRICA [Suspect]
     Indication: NEURALGIA
     Dosage: 75 MG, 3X/DAY
     Route: 048
     Dates: start: 20090803
  2. LIPITOR [Suspect]
     Indication: BLOOD CHOLESTEROL INCREASED
     Dosage: 10 MG, 1X/DAY
     Route: 048
  3. OXYCODONE [Suspect]
     Indication: PAIN
     Dosage: 10/325 MG, 2X/DAY
     Route: 048
  4. MIRAPEX [Suspect]
     Indication: RESTLESS LEGS SYNDROME
     Dosage: 5 MG, 3X/DAY
     Route: 048
  5. CYMBALTA [Suspect]
     Dosage: 60 MG, 2X/DAY
     Route: 048
  6. AMBIEN [Concomitant]
     Indication: SLEEP DISORDER
     Dosage: 10 MG, 1X/DAY
     Route: 048
  7. BENICAR HCT [Concomitant]
     Indication: HYPERTENSION
     Dosage: OLMESARTAN MEDOXOMIL 40 MG, HYDROCHLOROTHIAZIDE 25 MG
     Route: 048
  8. MULTI-VITAMINS [Concomitant]
     Dosage: UNK
  9. FISH OIL [Concomitant]
     Dosage: UNK

REACTIONS (5)
  - DRY MOUTH [None]
  - FALL [None]
  - OEDEMA PERIPHERAL [None]
  - PRESYNCOPE [None]
  - WEIGHT DECREASED [None]
